FAERS Safety Report 24359108 (Version 1)
Quarter: 2024Q3

REPORT INFORMATION
  Report Type: Report from Study
  Country: RO (occurrence: RO)
  Receive Date: 20240924
  Receipt Date: 20240924
  Transmission Date: 20241017
  Serious: Yes (Hospitalization)
  Sender: Unknown Manufacturer
  Company Number: RO-ROCHE-10000014856

PATIENT

DRUGS (6)
  1. PRALSETINIB [Suspect]
     Active Substance: PRALSETINIB
     Indication: Neoplasm malignant
     Dosage: FREQUENCY: DAILYDATE OF LAST DOSE PRIOR TO ADVERSE EVENT: 17/JUN/2024
     Route: 048
     Dates: start: 20240521
  2. PRALSETINIB [Suspect]
     Active Substance: PRALSETINIB
     Dosage: ON 22/AUG/2024 HE RECEIVED MOST RECENT DOSE OF STUDY DRUG PRALSETINIB PRIOR TO ADVERSE EVENT.
     Route: 048
     Dates: start: 20240812
  3. EUTHYROX [Concomitant]
     Active Substance: LEVOTHYROXINE SODIUM
     Indication: Product used for unknown indication
     Dosage: 75 MICROGRAM
     Dates: start: 20240620
  4. ALLOPURINOL [Concomitant]
     Active Substance: ALLOPURINOL
     Indication: Product used for unknown indication
     Dosage: 100 MILLIGRAM
     Dates: start: 20240130
  5. NORVASC [Concomitant]
     Active Substance: AMLODIPINE BESYLATE
     Indication: Product used for unknown indication
     Dosage: 10 MILLIGRAM
     Dates: start: 20240622
  6. INDAPAMIDE [Concomitant]
     Active Substance: INDAPAMIDE
     Indication: Product used for unknown indication
     Dosage: 1.5 MILLIGRAM
     Dates: start: 20240826

REACTIONS (1)
  - Pyrexia [Not Recovered/Not Resolved]

NARRATIVE: CASE EVENT DATE: 20240626
